FAERS Safety Report 23243538 (Version 2)
Quarter: 2024Q1

REPORT INFORMATION
  Report Type: Spontaneous
  Country: JP (occurrence: JP)
  Receive Date: 20231130
  Receipt Date: 20240125
  Transmission Date: 20240409
  Serious: Yes (Hospitalization, Other)
  Sender: FDA-Public Use
  Company Number: JP-ASTELLAS-2023JP013169

PATIENT
  Age: 81 Year
  Sex: Female
  Weight: 49 kg

DRUGS (2)
  1. PADCEV [Suspect]
     Active Substance: ENFORTUMAB VEDOTIN-EJFV
     Indication: Malignant neoplasm of renal pelvis
     Dosage: 1.0 MG/KG (50 MG), ONCE WEEKLY FOR 3 WEEKS AND DISCONTINUED AT WEEK 4
     Route: 041
     Dates: start: 20230529, end: 20231120
  2. DEXAMETHASONE SODIUM PHOSPHATE [Suspect]
     Active Substance: DEXAMETHASONE PHOSPHATE\DEXAMETHASONE SODIUM PHOSPHATE
     Indication: Premedication
     Dosage: 6.6 MG, ADMINISTERED BEFORE EVERY ENFORTUMAB VEDOTIN (GENETICAL RECOMBINATION) ADMINISTRATION
     Route: 041

REACTIONS (2)
  - Duodenal ulcer perforation [Recovered/Resolved]
  - Peritonitis [Recovered/Resolved]

NARRATIVE: CASE EVENT DATE: 20231121
